FAERS Safety Report 15428266 (Version 1)
Quarter: 2018Q3

REPORT INFORMATION
  Report Type: Spontaneous
  Country: DE (occurrence: DE)
  Receive Date: 20180926
  Receipt Date: 20180926
  Transmission Date: 20181010
  Serious: Yes (Hospitalization, Other)
  Sender: FDA-Public Use
  Company Number: DE-AUROBINDO-AUR-APL-2018-047026

PATIENT
  Age: 77 Year
  Sex: Male
  Weight: 96 kg

DRUGS (10)
  1. OXYCODONE [Suspect]
     Active Substance: OXYCODONE
     Indication: PAIN
     Dosage: UNK
     Route: 048
     Dates: end: 20180213
  2. ENTRESTO [Suspect]
     Active Substance: SACUBITRIL\VALSARTAN
     Dosage: 200 MILLIGRAM, ONCE A DAY (100 MG, BID)
     Route: 048
     Dates: start: 20171218, end: 20180117
  3. ATORVASTATIN [Concomitant]
     Active Substance: ATORVASTATIN
     Indication: HYPERLIPIDAEMIA
     Dosage: 40 OT, UNK
     Route: 048
     Dates: start: 201510
  4. ENTRESTO [Suspect]
     Active Substance: SACUBITRIL\VALSARTAN
     Indication: CARDIAC FAILURE
     Dosage: 400 MILLIGRAM, ONCE A DAY (200 MG, BID)
     Route: 048
     Dates: start: 20180118, end: 20180213
  5. SITAGLIPTIN [Concomitant]
     Active Substance: SITAGLIPTIN
     Dosage: 100 OT, UNK
     Route: 048
  6. SITAGLIPTIN [Concomitant]
     Active Substance: SITAGLIPTIN
     Indication: DIABETES MELLITUS
     Dosage: 50 MILLIGRAM
     Route: 048
  7. TAMSULOSIN [Concomitant]
     Active Substance: TAMSULOSIN
     Indication: BENIGN PROSTATIC HYPERPLASIA
     Dosage: 0.4 MILLIGRAM
     Route: 048
  8. APIXABAN [Concomitant]
     Active Substance: APIXABAN
     Indication: ATRIAL FIBRILLATION
     Dosage: 10 OT, UNK
     Route: 048
     Dates: start: 201510
  9. LEVOTHYROXINE. [Concomitant]
     Active Substance: LEVOTHYROXINE
     Indication: HYPOTHYROIDISM
     Dosage: 25 MILLIGRAM
     Route: 048
  10. SPIRONOLACTONE. [Suspect]
     Active Substance: SPIRONOLACTONE
     Indication: CARDIAC FAILURE
     Dosage: 25 MG, TIW
     Route: 048
     Dates: end: 20180213

REACTIONS (3)
  - Vomiting [Recovered/Resolved]
  - Renal impairment [Recovering/Resolving]
  - Acute myocardial infarction [Recovering/Resolving]

NARRATIVE: CASE EVENT DATE: 20180213
